FAERS Safety Report 5058034-2 (Version None)
Quarter: 2006Q3

REPORT INFORMATION
  Report Type: 
  Country: None (occurrence: None)
  Receive Date: 20060721
  Receipt Date: 20060522
  Transmission Date: 20061208
  Serious: No
  Sender: FDA-Public Use
  Company Number: US-GLAXOSMITHKLINE-A0606541A

PATIENT
  Sex: Female

DRUGS (10)
  1. AVANDIA [Suspect]
     Dosage: 4MG TWICE PER DAY
     Route: 048
     Dates: start: 20051101
  2. METFORMIN [Concomitant]
  3. VASOTEC [Concomitant]
  4. CLONAZEPAM [Concomitant]
  5. HYDROCODONE [Concomitant]
  6. ZOCOR [Concomitant]
  7. PROTONIX [Concomitant]
  8. CELEBREX [Concomitant]
  9. ARIMIDEX [Concomitant]
  10. ASPIRIN [Concomitant]

REACTIONS (2)
  - JOINT SWELLING [None]
  - OEDEMA PERIPHERAL [None]
